FAERS Safety Report 18479383 (Version 1)
Quarter: 2020Q4

REPORT INFORMATION
  Report Type: Spontaneous
  Country: US (occurrence: US)
  Receive Date: 20201109
  Receipt Date: 20201109
  Transmission Date: 20210114
  Serious: Yes (Hospitalization, Other)
  Sender: FDA-Public Use
  Company Number: US-STRIDES ARCOLAB LIMITED-2020SP013610

PATIENT
  Age: 17 Year
  Sex: Female

DRUGS (7)
  1. DOXORUBICIN [Suspect]
     Active Substance: DOXORUBICIN
     Indication: NON-HODGKIN^S LYMPHOMA STAGE IV
     Dosage: TWO CYCLES
     Route: 065
  2. ETOPOSIDE. [Suspect]
     Active Substance: ETOPOSIDE
     Indication: NON-HODGKIN^S LYMPHOMA STAGE IV
     Dosage: UNK, CYCLICAL, TWO CYCLES
     Route: 065
  3. PRALATREXATE [Suspect]
     Active Substance: PRALATREXATE
     Indication: NON-HODGKIN^S LYMPHOMA STAGE IV
     Dosage: UNK, CYCLICAL, TWO CYCLES OF PRALATREXATE 30 MG/M2/DOSE WEEKLY ,3 DOSES
     Route: 065
  4. IFOSFAMIDE. [Suspect]
     Active Substance: IFOSFAMIDE
     Indication: NON-HODGKIN^S LYMPHOMA STAGE IV
     Dosage: UNK, CYCLICAL, TWO CYCLES
     Route: 065
  5. PREDNISOLONE. [Suspect]
     Active Substance: PREDNISOLONE
     Indication: NON-HODGKIN^S LYMPHOMA STAGE IV
     Dosage: UNK, CYCLICAL, THREE CYCLES
     Route: 065
  6. CARBOPLATIN. [Suspect]
     Active Substance: CARBOPLATIN
     Indication: NON-HODGKIN^S LYMPHOMA STAGE IV
     Dosage: UNK, CYCLICAL, TWO CYCLES
     Route: 065
  7. CYCLOPHOSPHAMIDE. [Suspect]
     Active Substance: CYCLOPHOSPHAMIDE
     Indication: NON-HODGKIN^S LYMPHOMA STAGE IV
     Dosage: UNK, CYCLICAL, TWO CYCLES
     Route: 065

REACTIONS (3)
  - Non-Hodgkin^s lymphoma [Unknown]
  - Neutropenia [Unknown]
  - Mucosal inflammation [Unknown]
